FAERS Safety Report 9100194 (Version 2)
Quarter: 2013Q1

REPORT INFORMATION
  Report Type: Spontaneous
  Country: PT (occurrence: PT)
  Receive Date: 20130215
  Receipt Date: 20130227
  Transmission Date: 20140127
  Serious: Yes (Other)
  Sender: FDA-Public Use
  Company Number: PT-ROCHE-1191200

PATIENT
  Age: 42 Year
  Sex: Female

DRUGS (2)
  1. ALTEPLASE [Suspect]
     Indication: PULMONARY EMBOLISM
     Route: 065
  2. HEPARIN [Suspect]
     Indication: PULMONARY EMBOLISM
     Route: 065

REACTIONS (3)
  - Haematoma [Unknown]
  - Dysphagia [Unknown]
  - Cerebrovascular accident [Unknown]
